FAERS Safety Report 4379419-3 (Version None)
Quarter: 2004Q2

REPORT INFORMATION
  Report Type: 
  Country: None (occurrence: None)
  Receive Date: 20040610
  Receipt Date: 20040602
  Transmission Date: 20050107
  Serious: Yes (Hospitalization)
  Sender: FDA-Public Use
  Company Number: HQWYE259604JUN04

PATIENT
  Age: 35 Year
  Sex: Male
  Weight: 57.3 kg

DRUGS (8)
  1. LEUCOVORIN CALCIUM [Suspect]
     Indication: COLORECTAL CANCER METASTATIC
     Dates: start: 20040212
  2. FLUOROURACIL [Suspect]
     Indication: COLORECTAL CANCER METASTATIC
     Dates: start: 20040212
  3. OXALIPLATIN  (OXALIPLATIN) [Suspect]
     Indication: COLORECTAL CANCER METASTATIC
     Dosage: 1250 MG VERSUS PLACEBO
     Dates: start: 20040212
  4. DECADRON [Concomitant]
  5. MARINOL [Concomitant]
  6. PROCHLORPERAZINE (PROCLORPERAZINE) [Concomitant]
  7. IMODIUM [Concomitant]
  8. MORPHINE [Concomitant]

REACTIONS (6)
  - BACTERIA URINE IDENTIFIED [None]
  - CHEST X-RAY ABNORMAL [None]
  - FEBRILE NEUTROPENIA [None]
  - HICCUPS [None]
  - ORTHOSTATIC HYPOTENSION [None]
  - WHITE BLOOD CELL COUNT DECREASED [None]
